FAERS Safety Report 17640756 (Version 2)
Quarter: 2020Q2

REPORT INFORMATION
  Report Type: Spontaneous
  Country: SG (occurrence: SG)
  Receive Date: 20200407
  Receipt Date: 20200420
  Transmission Date: 20200713
  Serious: Yes (Other)
  Sender: FDA-Public Use
  Company Number: SG-BAUSCH-BL-2020-009104

PATIENT
  Age: 62 Year
  Sex: Male
  Weight: 73.3 kg

DRUGS (3)
  1. CYPROHEPTADINE. [Suspect]
     Active Substance: CYPROHEPTADINE
     Indication: ARTHRALGIA
     Dosage: STOPPED 1 DAY BEFORE HIS SURGERY (ELECTIVE TOTAL HIP REPLACEMENT)
     Route: 065
  2. PREDNISOLONE. [Suspect]
     Active Substance: PREDNISOLONE
     Indication: ARTHRALGIA
     Dosage: STOPPED 1 DAY BEFORE HIS SURGERY (ELECTIVE TOTAL HIP REPLACEMENT)
     Route: 065
  3. PIROXICAM. [Suspect]
     Active Substance: PIROXICAM
     Indication: ARTHRALGIA
     Dosage: STOPPED 1 DAY BEFORE HIS SURGERY (ELECTIVE TOTAL HIP REPLACEMENT)
     Route: 065

REACTIONS (5)
  - Abdominal discomfort [Unknown]
  - Weight increased [Unknown]
  - Increased appetite [Unknown]
  - Osteonecrosis [Unknown]
  - Adrenal insufficiency [Recovering/Resolving]
